FAERS Safety Report 22124943 (Version 4)
Quarter: 2023Q2

REPORT INFORMATION
  Report Type: Spontaneous
  Country: CA (occurrence: None)
  Receive Date: 20230322
  Receipt Date: 20230519
  Transmission Date: 20230721
  Serious: Yes (Life-Threatening, Hospitalization, Other)
  Sender: FDA-Public Use
  Company Number: CA-PFIZER INC-202300005673

PATIENT
  Age: 66 Year
  Sex: Female

DRUGS (5)
  1. METHOTREXATE [Suspect]
     Active Substance: METHOTREXATE
     Indication: Product used for unknown indication
     Route: 065
  2. XELJANZ [Suspect]
     Active Substance: TOFACITINIB CITRATE
     Indication: Rheumatoid arthritis
     Route: 048
     Dates: start: 202212, end: 20230220
  3. XELJANZ [Suspect]
     Active Substance: TOFACITINIB CITRATE
     Route: 065
     Dates: start: 2023
  4. PREDNISONE [Concomitant]
     Active Substance: PREDNISONE
     Dosage: ONGOING
     Route: 065
  5. SENOKOT [Concomitant]
     Active Substance: SENNOSIDES
     Dosage: ONGOING
     Route: 065

REACTIONS (5)
  - Intestinal ischaemia [Recovering/Resolving]
  - Intestinal obstruction [Recovering/Resolving]
  - Coronary artery occlusion [Recovering/Resolving]
  - Hip arthroplasty [Recovered/Resolved]
  - Constipation [Not Recovered/Not Resolved]

NARRATIVE: CASE EVENT DATE: 20221201
